FAERS Safety Report 5336280-8 (Version None)
Quarter: 2007Q2

REPORT INFORMATION
  Report Type: 
  Country: None (occurrence: None)
  Receive Date: 20070315
  Receipt Date: 20061116
  Transmission Date: 20071010
  Serious: Yes (Other)
  Sender: FDA-Public Use
  Company Number: BDI-008874

PATIENT
  Age: 64 Year
  Sex: Male
  Weight: 90.91 kg

DRUGS (1)
  1. MULTIHANCE [Suspect]
     Indication: NERVOUS SYSTEM DISORDER
     Dosage: 20 ML ONCE IV
     Route: 042
     Dates: start: 20061110, end: 20061110

REACTIONS (3)
  - DYSPNOEA [None]
  - NASAL CONGESTION [None]
  - OEDEMA MOUTH [None]
